FAERS Safety Report 15958288 (Version 1)
Quarter: 2019Q1

REPORT INFORMATION
  Report Type: Report from Study
  Country: CO (occurrence: CO)
  Receive Date: 20190213
  Receipt Date: 20190213
  Transmission Date: 20190417
  Serious: Yes (Hospitalization)
  Sender: FDA-Public Use
  Company Number: PHHY2019CO034081

PATIENT
  Age: 60 Year
  Sex: Male
  Weight: 80 kg

DRUGS (1)
  1. ENTRESTO [Suspect]
     Active Substance: SACUBITRIL\VALSARTAN
     Indication: CARDIAC FAILURE
     Dosage: 50 MG (26 MG SACUBITRIL/ 24 MG VALSARTAN), Q12H
     Route: 048
     Dates: start: 20181003

REACTIONS (2)
  - Oedema peripheral [Unknown]
  - Pain [Unknown]

NARRATIVE: CASE EVENT DATE: 20190205
